FAERS Safety Report 16730386 (Version 2)
Quarter: 2019Q3

REPORT INFORMATION
  Report Type: Spontaneous
  Country: US (occurrence: US)
  Receive Date: 20190822
  Receipt Date: 20190920
  Transmission Date: 20191005
  Serious: Yes (Hospitalization, Other)
  Sender: FDA-Public Use
  Company Number: US-BRISTOL-MYERS SQUIBB COMPANY-BMS-2019-080224

PATIENT
  Age: 52 Year
  Sex: Male

DRUGS (2)
  1. OPDIVO [Suspect]
     Active Substance: NIVOLUMAB
     Indication: METASTATIC MALIGNANT MELANOMA
     Dosage: 95 MILLIGRAM
     Route: 065
     Dates: start: 20190523, end: 20190711
  2. YERVOY [Suspect]
     Active Substance: IPILIMUMAB
     Indication: METASTATIC MALIGNANT MELANOMA
     Dosage: 285 MILLIGRAM
     Route: 065
     Dates: start: 20190523, end: 20190711

REACTIONS (6)
  - Rash [Unknown]
  - Diabetic hyperosmolar coma [Unknown]
  - Type 1 diabetes mellitus [Unknown]
  - Renal failure [Unknown]
  - Diabetic ketoacidosis [Unknown]
  - Diarrhoea [Unknown]

NARRATIVE: CASE EVENT DATE: 2019
